FAERS Safety Report 5847404-8 (Version None)
Quarter: 2008Q3

REPORT INFORMATION
  Report Type: 
  Country: None (occurrence: None)
  Receive Date: 20080815
  Receipt Date: 20080812
  Transmission Date: 20090109
  Serious: Yes (Death, Other)
  Sender: FDA-Public Use
  Company Number: CL-ABBOTT-08P-034-0470377-00

PATIENT
  Sex: Male
  Weight: 79 kg

DRUGS (5)
  1. KALETRA [Suspect]
     Indication: HIV INFECTION
     Dosage: 400MG/100MG (TWO 200/500MG TABLETS TWICE DAILY
     Route: 048
     Dates: start: 20071201, end: 20080808
  2. KALETRA [Suspect]
     Indication: HIV INFECTION
     Route: 048
     Dates: start: 20070817, end: 20071201
  3. ZIDOVUDINE [Concomitant]
     Indication: HIV INFECTION
     Route: 048
     Dates: start: 20070817, end: 20080808
  4. LAMIVUDINE [Concomitant]
     Indication: HIV INFECTION
     Route: 048
     Dates: start: 20070817, end: 20080808
  5. NEVIRAPINE [Concomitant]
     Indication: HIV INFECTION
     Route: 048
     Dates: start: 20070817, end: 20080808

REACTIONS (1)
  - OBSTRUCTIVE AIRWAYS DISORDER [None]
